FAERS Safety Report 18717672 (Version 10)
Quarter: 2021Q1

REPORT INFORMATION
  Report Type: Spontaneous
  Country: US (occurrence: US)
  Receive Date: 20210108
  Receipt Date: 20210323
  Transmission Date: 20210419
  Serious: Yes (Hospitalization)
  Sender: FDA-Public Use
  Company Number: US-GLAXOSMITHKLINE-US2020AMR259723

PATIENT
  Age: 31 Year
  Sex: Female

DRUGS (8)
  1. FLOLAN [Suspect]
     Active Substance: EPOPROSTENOL SODIUM
     Indication: PULMONARY ARTERIAL HYPERTENSION
     Dosage: 28 NG/KG/MIN, CO, PUMP RATE:85 ML/DAY
     Dates: start: 20201224
  2. FLOLAN [Suspect]
     Active Substance: EPOPROSTENOL SODIUM
     Indication: PULMONARY ARTERIAL HYPERTENSION
     Dosage: 34 NG/KG/MIN, CO
     Dates: start: 20201224
  3. SILDENAFIL CITRATE. [Concomitant]
     Active Substance: SILDENAFIL CITRATE
     Indication: PRODUCT USED FOR UNKNOWN INDICATION
     Dosage: UNK
  4. FLOLAN DILUENT PH 12 [Suspect]
     Active Substance: GLYCINE\MANNITOL\SODIUM CHLORIDE
     Dosage: UNK
  5. FLOLAN [Suspect]
     Active Substance: EPOPROSTENOL SODIUM
     Indication: PULMONARY ARTERIAL HYPERTENSION
     Dosage: 42 DF, CO(45,000 NG/ML PUMP RATE: 85 ML/DAY)
     Dates: start: 20201224
  6. FLOLAN DILUENT PH 12 [Suspect]
     Active Substance: GLYCINE\MANNITOL\SODIUM CHLORIDE
     Indication: PULMONARY ARTERIAL HYPERTENSION
     Dosage: UNK
     Dates: start: 20201224
  7. FLOLAN DILUENT PH 12 [Suspect]
     Active Substance: GLYCINE\MANNITOL\SODIUM CHLORIDE
     Dosage: UNK
  8. FLOLAN DILUENT PH 12 [Suspect]
     Active Substance: GLYCINE\MANNITOL\SODIUM CHLORIDE
     Dosage: UNK

REACTIONS (21)
  - Tremor [Unknown]
  - Limb discomfort [Unknown]
  - Hypersensitivity [Unknown]
  - Diarrhoea [Not Recovered/Not Resolved]
  - Catheter site rash [Recovering/Resolving]
  - Arthralgia [Unknown]
  - Infusion site rash [Recovering/Resolving]
  - Drainage [Unknown]
  - Catheter site related reaction [Recovering/Resolving]
  - Pain in extremity [Unknown]
  - Pyrexia [Unknown]
  - Catheter site erythema [Recovering/Resolving]
  - Lip swelling [Recovered/Resolved]
  - Application site warmth [Unknown]
  - Catheter site pruritus [Unknown]
  - Eye swelling [Recovered/Resolved]
  - Pain in jaw [Unknown]
  - Rash [Unknown]
  - Skin irritation [Unknown]
  - Secretion discharge [Unknown]
  - Jaw disorder [Unknown]

NARRATIVE: CASE EVENT DATE: 20201228
